FAERS Safety Report 15289963 (Version 1)
Quarter: 2018Q3

REPORT INFORMATION
  Report Type: Spontaneous
  Country: US (occurrence: US)
  Receive Date: 20180817
  Receipt Date: 20180817
  Transmission Date: 20181010
  Serious: Yes (Hospitalization, Other)
  Sender: FDA-Public Use
  Company Number: US-JNJFOC-20180816971

PATIENT
  Age: 54 Year
  Sex: Male

DRUGS (1)
  1. INVOKANA [Suspect]
     Active Substance: CANAGLIFLOZIN
     Indication: TYPE 2 DIABETES MELLITUS
     Route: 048
     Dates: start: 20150706, end: 20170731

REACTIONS (9)
  - Cellulitis [Unknown]
  - Limb amputation [Unknown]
  - Abscess limb [Unknown]
  - Renal injury [Recovering/Resolving]
  - Neuropathic arthropathy [Unknown]
  - Impaired healing [Unknown]
  - Osteomyelitis [Unknown]
  - Gas gangrene [Unknown]
  - Diabetic ulcer [Recovered/Resolved]

NARRATIVE: CASE EVENT DATE: 201512
